FAERS Safety Report 7644259-6 (Version None)
Quarter: 2011Q3

REPORT INFORMATION
  Report Type: 
  Country: None (occurrence: None)
  Receive Date: 20110729
  Receipt Date: 20110721
  Transmission Date: 20111222
  Serious: Yes (Other)
  Sender: FDA-Public Use
  Company Number: PHHY2011DE66908

PATIENT
  Sex: Female

DRUGS (1)
  1. EXTAVIA [Suspect]
     Indication: MULTIPLE SCLEROSIS
     Dosage: 187 UG, QOD
     Route: 058
     Dates: start: 20110628, end: 20110719

REACTIONS (2)
  - VENTRICULAR EXTRASYSTOLES [None]
  - CONDITION AGGRAVATED [None]
